FAERS Safety Report 17831350 (Version 2)
Quarter: 2020Q3

REPORT INFORMATION
  Report Type: Spontaneous
  Country: US (occurrence: US)
  Receive Date: 20200527
  Receipt Date: 20200717
  Transmission Date: 20201103
  Serious: No
  Sender: FDA-Public Use
  Company Number: US-009507513-2005USA002359

PATIENT
  Age: 80 Year
  Sex: Female

DRUGS (3)
  1. PROVENTIL [Suspect]
     Active Substance: ALBUTEROL
     Dosage: 2 TO 3 PUFFS 4 TO 6 TIMES A DAY
  2. PROVENTIL [Suspect]
     Active Substance: ALBUTEROL
     Dosage: 2 TO 3 PUFFS 4 TO 6 TIMES A DAY
  3. PROVENTIL [Suspect]
     Active Substance: ALBUTEROL
     Dosage: 2 TO 3 PUFFS 4 TO 6 TIMES A DAY

REACTIONS (5)
  - No adverse event [Unknown]
  - Product quality issue [Unknown]
  - Incorrect dose administered by product [Unknown]
  - Poor quality device used [Unknown]
  - Product use issue [Unknown]

NARRATIVE: CASE EVENT DATE: 202004
